FAERS Safety Report 17806875 (Version 1)
Quarter: 2020Q2

REPORT INFORMATION
  Report Type: Spontaneous
  Country: US (occurrence: US)
  Receive Date: 20200520
  Receipt Date: 20200520
  Transmission Date: 20200714
  Serious: No
  Sender: FDA-Public Use
  Company Number: US-PFIZER INC-2020195704

PATIENT
  Sex: Female

DRUGS (2)
  1. ALBUTEROL [SALBUTAMOL] [Interacting]
     Active Substance: ALBUTEROL
     Dosage: UNK
  2. IBUPROFEN. [Suspect]
     Active Substance: IBUPROFEN
     Dosage: UNK

REACTIONS (2)
  - Drug interaction [Unknown]
  - False positive investigation result [Unknown]

NARRATIVE: CASE EVENT DATE: 20200514
